FAERS Safety Report 7089020-9 (Version None)
Quarter: 2010Q4

REPORT INFORMATION
  Report Type: 
  Country: None (occurrence: None)
  Receive Date: 20101108
  Receipt Date: 20101102
  Transmission Date: 20110411
  Serious: Yes (Death, Life-Threatening, Disabling)
  Sender: FDA-Public Use
  Company Number: A0890310A

PATIENT
  Age: 54 Year
  Sex: Female

DRUGS (11)
  1. TYKERB [Suspect]
     Indication: BREAST CANCER
     Dosage: 5TAB PER DAY
     Route: 048
     Dates: start: 20091210, end: 20100621
  2. NEXIUM [Concomitant]
  3. MEGACE [Concomitant]
  4. UNKNOWN MEDICATION [Concomitant]
  5. PERCOCET [Concomitant]
  6. NEURONTIN [Concomitant]
  7. COUMADIN [Concomitant]
  8. XELODA [Concomitant]
  9. NEXIUM [Concomitant]
  10. ATIVAN [Concomitant]
  11. POTASSIUM CHLORIDE [Concomitant]
     Route: 042

REACTIONS (2)
  - ADVERSE EVENT [None]
  - DEATH [None]
